FAERS Safety Report 7863247-8 (Version None)
Quarter: 2011Q4

REPORT INFORMATION
  Report Type: 
  Country: None (occurrence: None)
  Receive Date: 20111027
  Receipt Date: 20101130
  Transmission Date: 20120403
  Serious: No
  Sender: FDA-Public Use
  Company Number: US-AMGEN-USASP2010007051

PATIENT
  Age: 39 Year
  Sex: Female
  Weight: 78.458 kg

DRUGS (1)
  1. ENBREL [Suspect]
     Indication: RHEUMATOID ARTHRITIS
     Dosage: 50 MG, QWK
     Route: 058
     Dates: start: 20100910, end: 20101110

REACTIONS (2)
  - INJECTION SITE SWELLING [None]
  - INJECTION SITE RASH [None]
